FAERS Safety Report 4621916-7 (Version None)
Quarter: 2005Q1

REPORT INFORMATION
  Report Type: 
  Country: None (occurrence: None)
  Receive Date: 20050329
  Receipt Date: 20050318
  Transmission Date: 20050727
  Serious: Yes (Hospitalization)
  Sender: FDA-Public Use
  Company Number: SE-GLAXOSMITHKLINE-B0375995A

PATIENT
  Age: 48 Year
  Sex: Female

DRUGS (2)
  1. LAMICTAL [Suspect]
     Indication: PSYCHOTIC DISORDER
     Dosage: 25MG UNKNOWN
     Route: 048
     Dates: start: 20031001, end: 20040518
  2. UNSPECIFIED DRUG [Suspect]
     Indication: DEPRESSION
     Dosage: 40MG PER DAY
     Route: 048
     Dates: start: 20031001, end: 20031001

REACTIONS (3)
  - DEPRESSION [None]
  - DRUG INTERACTION [None]
  - MANIA [None]
